FAERS Safety Report 10071656 (Version 1)
Quarter: 2014Q2

REPORT INFORMATION
  Report Type: Spontaneous
  Country: US (occurrence: US)
  Receive Date: 20140411
  Receipt Date: 20140411
  Transmission Date: 20141212
  Serious: No
  Sender: FDA-Public Use
  Company Number: US-009507513-1404USA004323

PATIENT
  Sex: Female

DRUGS (3)
  1. PEGINTRON [Suspect]
     Indication: HEPATITIS C
     Dosage: 0.5 CC, QW (STRENGTH: 120 MCG/0.5 CC)
     Route: 058
     Dates: start: 20140327
  2. REBETOL [Suspect]
     Indication: HEPATITIS C
     Dosage: 2 AM AND PM, TWICE A DAY
     Route: 048
     Dates: start: 20140327
  3. SOVALDI [Concomitant]
     Dosage: DOSE WAS REPORETD AS 1,  QD
     Route: 048

REACTIONS (4)
  - Bedridden [Unknown]
  - Asthenia [Unknown]
  - Dizziness [Unknown]
  - Chills [Unknown]
